FAERS Safety Report 8942016 (Version 1)
Quarter: 2012Q4

REPORT INFORMATION
  Report Type: 
  Country: DE (occurrence: DE)
  Receive Date: 20121130
  Receipt Date: 20121130
  Transmission Date: 20130627
  Serious: Yes (Death)
  Sender: FDA-Public Use
  Company Number: DE-UCBSA-072046

PATIENT
  Sex: Female

DRUGS (2)
  1. VIMPAT [Suspect]
     Dates: end: 20121119
  2. LAMOTRIGINE [Concomitant]
     Dates: end: 20121119

REACTIONS (2)
  - Completed suicide [Fatal]
  - Toxicity to various agents [Fatal]
